FAERS Safety Report 9753003 (Version 2)
Quarter: 2014Q2

REPORT INFORMATION
  Report Type: Spontaneous
  Country: US (occurrence: US)
  Receive Date: 20131213
  Receipt Date: 20140604
  Transmission Date: 20141212
  Serious: Yes (Death, Hospitalization)
  Sender: FDA-Public Use
  Company Number: US-B.I. PHARMACEUTICALS,INC./RIDGEFIELD-2013-BI-41771BP

PATIENT
  Age: 70 Year
  Sex: Male
  Weight: 111.13 kg

DRUGS (16)
  1. PRADAXA [Suspect]
     Indication: ATRIAL FIBRILLATION
     Dosage: 300 MG
     Route: 065
     Dates: start: 20111117
  2. PRADAXA [Suspect]
     Indication: ANTICOAGULANT THERAPY
  3. AGGRENOX [Concomitant]
     Indication: ATRIAL FIBRILLATION
     Dosage: DOSE PER APPLICATION: 25-200
     Route: 065
     Dates: start: 20061207, end: 2012
  4. COZAAR [Concomitant]
     Indication: CARDIAC FAILURE CONGESTIVE
     Dosage: 50 MG
     Route: 065
  5. FLOMAX [Concomitant]
     Dosage: 0.4 MG
     Route: 065
  6. LASIX [Concomitant]
     Indication: OEDEMA
     Dosage: 40 ALTERNATE WITH 60
     Route: 065
  7. LORTAB [Concomitant]
     Dosage: DOSE PER APPLICATION: 5/500 PRN
     Route: 065
  8. POTASSIUM CHLORIDE [Concomitant]
     Route: 065
  9. ZEMPLAR [Concomitant]
     Dosage: 1 MCG
     Route: 048
  10. ZOCOR [Concomitant]
     Route: 065
  11. ALLOPURINOL [Concomitant]
     Dosage: 500 MG
     Route: 065
     Dates: start: 20101027, end: 2012
  12. HYDROXYUREA [Concomitant]
     Dosage: 500 MG
     Route: 065
     Dates: start: 20060911, end: 2012
  13. METOPROLOL TARTRATE [Concomitant]
     Dosage: 1000 MG
     Route: 065
     Dates: start: 20060828, end: 2012
  14. VENLAFAXINE [Concomitant]
     Dosage: 75 MG
     Route: 065
  15. NIACIN [Concomitant]
     Route: 065
  16. FLONASE [Concomitant]
     Route: 065

REACTIONS (3)
  - Cardiac failure [Fatal]
  - Rectal haemorrhage [Recovered/Resolved]
  - Haemorrhagic anaemia [Unknown]
